FAERS Safety Report 5520290-1 (Version None)
Quarter: 2007Q4

REPORT INFORMATION
  Report Type: 
  Country: None (occurrence: None)
  Receive Date: 20071115
  Receipt Date: 20071115
  Transmission Date: 20080405
  Serious: No
  Sender: FDA-Public Use
  Company Number: None

PATIENT
  Sex: Female
  Weight: 68.0396 kg

DRUGS (1)
  1. LEVAQUIN [Suspect]
     Indication: URINARY TRACT INFECTION
     Dosage: 500MG TAB ONCE A DAY P.O.
     Route: 048
     Dates: start: 20071012, end: 20071014

REACTIONS (3)
  - SWELLING [None]
  - TENDON DISORDER [None]
  - TENDON PAIN [None]
